FAERS Safety Report 7861394-8 (Version None)
Quarter: 2011Q4

REPORT INFORMATION
  Report Type: 
  Country: None (occurrence: None)
  Receive Date: 20111027
  Receipt Date: 20111027
  Transmission Date: 20120403
  Serious: Yes (Death, Other)
  Sender: FDA-Public Use
  Company Number: US-PFIZER INC-2010009184

PATIENT
  Sex: Female

DRUGS (1)
  1. CHANTIX [Suspect]
     Indication: SMOKING CESSATION THERAPY
     Dosage: UNK
     Dates: start: 20071217

REACTIONS (8)
  - MOOD ALTERED [None]
  - ABNORMAL BEHAVIOUR [None]
  - COMPLETED SUICIDE [None]
  - INTENTIONAL OVERDOSE [None]
  - GUN SHOT WOUND [None]
  - IMPAIRED DRIVING ABILITY [None]
  - LETHARGY [None]
  - DEPRESSION [None]
